FAERS Safety Report 25575345 (Version 1)
Quarter: 2025Q3

REPORT INFORMATION
  Report Type: Report from Study
  Country: CA (occurrence: CA)
  Receive Date: 20250718
  Receipt Date: 20250718
  Transmission Date: 20251021
  Serious: Yes (Death, Other)
  Sender: ABBVIE
  Company Number: CA-ABBVIE-6375452

PATIENT
  Sex: Male

DRUGS (1)
  1. SKYRIZI [Suspect]
     Active Substance: RISANKIZUMAB-RZAA
     Indication: Crohn^s disease
     Route: 058

REACTIONS (17)
  - Acute kidney injury [Fatal]
  - Respiratory failure [Fatal]
  - Hypoxia [Unknown]
  - Chest pain [Unknown]
  - Mental status changes [Unknown]
  - Respiratory distress [Unknown]
  - Oedema [Unknown]
  - Azotaemia [Unknown]
  - Disseminated intravascular coagulation [Unknown]
  - Rectal abscess [Unknown]
  - Cholestasis [Unknown]
  - Hyperbilirubinaemia [Unknown]
  - Generalised oedema [Unknown]
  - Metabolic acidosis [Unknown]
  - Crohn^s disease [Fatal]
  - Sepsis [Fatal]
  - Gastrointestinal haemorrhage [Unknown]
